FAERS Safety Report 9630605 (Version 1)
Quarter: 2013Q4

REPORT INFORMATION
  Report Type: Spontaneous
  Country: US (occurrence: None)
  Receive Date: 20131015
  Receipt Date: 20131015
  Transmission Date: 20140711
  Serious: Yes (Death)
  Sender: FDA-Public Use
  Company Number: 2013AP008648

PATIENT
  Sex: 0

DRUGS (7)
  1. DILT-XR [Suspect]
     Route: 048
  2. TRAMADOL HYDROCHLORIDE TABLETS [Suspect]
     Route: 048
  3. CARVEDILOL TABLETS [Suspect]
     Route: 048
  4. LISINOPRIL TABLETS [Suspect]
     Route: 048
  5. COCAINE [Suspect]
     Route: 048
  6. DIAZEPAM [Suspect]
     Route: 048
  7. AMIODARONE [Suspect]
     Route: 048

REACTIONS (1)
  - Completed suicide [None]
